FAERS Safety Report 12884378 (Version 1)
Quarter: 2016Q4

REPORT INFORMATION
  Report Type: Spontaneous
  Country: US (occurrence: US)
  Receive Date: 20161026
  Receipt Date: 20161026
  Transmission Date: 20170207
  Serious: No
  Sender: FDA-Public Use
  Company Number: US-TEVA-707012USA

PATIENT
  Age: 27 Year
  Sex: Female

DRUGS (10)
  1. COPAXONE [Suspect]
     Active Substance: GLATIRAMER ACETATE
     Indication: MULTIPLE SCLEROSIS
     Route: 058
     Dates: start: 201603
  2. OMEPRAZOLE. [Concomitant]
     Active Substance: OMEPRAZOLE
  3. BUPROPION. [Concomitant]
     Active Substance: BUPROPION
  4. DULOXETINE. [Concomitant]
     Active Substance: DULOXETINE
  5. GABAPENTIN. [Concomitant]
     Active Substance: GABAPENTIN
  6. BUSPIRONE [Concomitant]
     Active Substance: BUSPIRONE HYDROCHLORIDE
  7. SERTRALINE [Concomitant]
     Active Substance: SERTRALINE HYDROCHLORIDE
  8. DIAZEPAM. [Concomitant]
     Active Substance: DIAZEPAM
  9. METHYLPHENIDE [Concomitant]
  10. TIZANIDINE. [Concomitant]
     Active Substance: TIZANIDINE

REACTIONS (2)
  - Drug dose omission [Unknown]
  - Injection site urticaria [Unknown]

NARRATIVE: CASE EVENT DATE: 201609
